FAERS Safety Report 8485901-X (Version None)
Quarter: 2012Q3

REPORT INFORMATION
  Report Type: 
  Country: None (occurrence: None)
  Receive Date: 20120703
  Receipt Date: 20120702
  Transmission Date: 20120928
  Serious: Yes (Other)
  Sender: FDA-Public Use
  Company Number: US-JNJFOC-20120611148

PATIENT
  Sex: Female

DRUGS (4)
  1. TOPAMAX [Suspect]
     Indication: MIGRAINE
  2. AXERT [Concomitant]
     Indication: MIGRAINE
  3. XARELTO [Suspect]
     Indication: FACTOR V LEIDEN MUTATION
     Route: 048
  4. TOPAMAX [Suspect]

REACTIONS (3)
  - MIGRAINE [None]
  - MENSTRUAL DISORDER [None]
  - OFF LABEL USE [None]
